FAERS Safety Report 4381048-2 (Version None)
Quarter: 2004Q2

REPORT INFORMATION
  Report Type: 
  Country: None (occurrence: None)
  Receive Date: 20040601
  Receipt Date: 20040408
  Transmission Date: 20050107
  Serious: No
  Sender: FDA-Public Use
  Company Number: FABR-10534

PATIENT
  Age: 53 Year
  Sex: Male
  Weight: 65.5 kg

DRUGS (10)
  1. FABRAZYME [Suspect]
     Indication: FABRY'S DISEASE
     Dosage: 1 MG/KG Q2WKS IV
     Route: 042
     Dates: start: 20040206
  2. BUSPIRONE [Concomitant]
  3. PHOSLO [Concomitant]
  4. LORAZEPAM [Concomitant]
  5. VITAMIN B COMPLEX CAP [Concomitant]
  6. VITAMIN C [Concomitant]
  7. COUMADIN [Concomitant]
  8. ACIPHEX [Concomitant]
  9. NEPHROVITE [Concomitant]
  10. ALLEGRA [Concomitant]

REACTIONS (3)
  - EYE REDNESS [None]
  - SWELLING FACE [None]
  - WEIGHT INCREASED [None]
